FAERS Safety Report 5464024-8 (Version None)
Quarter: 2007Q3

REPORT INFORMATION
  Report Type: 
  Country: None (occurrence: None)
  Receive Date: 20070918
  Receipt Date: 20070904
  Transmission Date: 20080115
  Serious: Yes (Hospitalization, Other)
  Sender: FDA-Public Use
  Company Number: 2007US-09804

PATIENT
  Age: 58 Year
  Sex: Male

DRUGS (23)
  1. ISOPTIN SR [Suspect]
     Indication: SUPRAVENTRICULAR TACHYCARDIA
     Dosage: 120 MG, QD, ORAL
     Route: 048
     Dates: start: 20070524, end: 20070528
  2. OMEPRAZOLE [Suspect]
     Indication: GASTROINTESTINAL DISORDER
     Dosage: 20 MG, QD, ORAL
     Route: 048
     Dates: start: 20070528, end: 20070528
  3. MEXILETINE HYDROCHLORIDE [Suspect]
     Indication: VENTRICULAR ARRHYTHMIA
     Dosage: 300 MG, QD, ORAL
     Route: 048
     Dates: start: 20070525, end: 20070528
  4. WARFARIN POTASSIUM UNKNOWN [Concomitant]
  5. WARFARIN POTASSIUM UNKNOWN [Concomitant]
  6. WARFARIN POTASSIUM UNKNOWN [Concomitant]
  7. WARFARIN POTASSIUM UNKNOWN [Concomitant]
  8. OLMESARTAN MEDOXOMIL [Concomitant]
  9. HALFDIGOXIN [Concomitant]
  10. FUROSEMIDE TABLET (FUROSEMIDE) UNKNOWN [Concomitant]
  11. FUROSEMIDE TABLET (FUROSEMIDE) UNKNOWN [Concomitant]
  12. SPIRONOLACTONE UNKNOWN [Concomitant]
  13. CARVEDILOL (CARVEDILOL) UNKNOWN [Concomitant]
  14. CARVEDILOL (CARVEDILOL) UNKNOWN [Concomitant]
  15. CARVEDILOL (CARVEDILOL) UNKNOWN [Concomitant]
  16. CALCIUM POLYSTYRENE SULFONATE UNKNOWN [Concomitant]
  17. SOLDEM 3A UNKNOWN [Concomitant]
  18. HEPARIN SODIUM UNKNOWN [Concomitant]
  19. ISOTONIC SODIUM CHLORIDE SOLUTION INFUSION [Concomitant]
  20. DOPAMINE HYDROCHLORIDE INFUSION [Concomitant]
  21. DILTIAZEM HYDROCHLORIDE UNKNOWN [Concomitant]
  22. POTASSIUM CHLORIDE UNKNOWN [Concomitant]
  23. SULTAMUGIN UNKNOWN [Concomitant]

REACTIONS (4)
  - DYSPNOEA [None]
  - HEPATIC FUNCTION ABNORMAL [None]
  - PYREXIA [None]
  - WHITE BLOOD CELL COUNT INCREASED [None]
